FAERS Safety Report 17681213 (Version 1)
Quarter: 2020Q2

REPORT INFORMATION
  Report Type: Spontaneous
  Country: US (occurrence: US)
  Receive Date: 20200417
  Receipt Date: 20200417
  Transmission Date: 20200714
  Serious: Yes (Other)
  Sender: FDA-Public Use
  Company Number: US-TEVA-2020-US-1223960

PATIENT
  Age: 92 Year
  Sex: Female

DRUGS (1)
  1. CEFALEXIN [Suspect]
     Active Substance: CEPHALEXIN
     Route: 065

REACTIONS (4)
  - Product use complaint [Unknown]
  - Wrong technique in product usage process [Unknown]
  - Choking [Recovering/Resolving]
  - Product odour abnormal [Unknown]

NARRATIVE: CASE EVENT DATE: 20200409
